FAERS Safety Report 13983097 (Version 1)
Quarter: 2017Q3

REPORT INFORMATION
  Report Type: Spontaneous
  Country: US (occurrence: US)
  Receive Date: 20170918
  Receipt Date: 20170918
  Transmission Date: 20171128
  Serious: No
  Sender: FDA-Public Use
  Company Number: US-ALVOGEN-2017-ALVOGEN-091405

PATIENT
  Sex: Female
  Weight: 55.79 kg

DRUGS (2)
  1. FLORAJEN 3 [Concomitant]
     Active Substance: PROBIOTICS NOS
     Indication: PRODUCT USED FOR UNKNOWN INDICATION
     Dates: start: 20161203
  2. CLINDAMYCIN. [Suspect]
     Active Substance: CLINDAMYCIN
     Indication: PRODUCT USED FOR UNKNOWN INDICATION
     Route: 048
     Dates: start: 20161203, end: 20161210

REACTIONS (2)
  - Abdominal discomfort [Unknown]
  - Malaise [Not Recovered/Not Resolved]
